FAERS Safety Report 5118719-6 (Version None)
Quarter: 2006Q4

REPORT INFORMATION
  Report Type: 
  Country: None (occurrence: None)
  Receive Date: 20061002
  Receipt Date: 20060731
  Transmission Date: 20070319
  Serious: Yes (Hospitalization)
  Sender: FDA-Public Use
  Company Number: US-ROCHE-457748

PATIENT
  Age: 30 Year
  Sex: Female

DRUGS (5)
  1. PEGASYS [Suspect]
     Dosage: ROUTE REPORTED AS INJECTABLE.
     Route: 050
     Dates: start: 20060621, end: 20060712
  2. COPEGUS [Suspect]
     Route: 048
     Dates: start: 20060621, end: 20060712
  3. SEROQUEL [Suspect]
     Indication: DRUG USE FOR UNKNOWN INDICATION
     Route: 065
  4. ALBUTEROL [Concomitant]
     Dosage: DRUG REPORTED AS ALBUTEROL INHALER.
     Route: 055
  5. ZOLOFT [Concomitant]

REACTIONS (11)
  - AGITATION [None]
  - BLOOD POTASSIUM DECREASED [None]
  - CELLULITIS [None]
  - DRUG ABUSER [None]
  - LOSS OF CONSCIOUSNESS [None]
  - OEDEMA PERIPHERAL [None]
  - OVERDOSE [None]
  - PLATELET COUNT DECREASED [None]
  - PNEUMONIA [None]
  - PULMONARY THROMBOSIS [None]
  - THROMBOSIS [None]
